FAERS Safety Report 7779679-2 (Version None)
Quarter: 2011Q3

REPORT INFORMATION
  Report Type: 
  Country: None (occurrence: None)
  Receive Date: 20110927
  Receipt Date: 20100318
  Transmission Date: 20111222
  Serious: Yes (Other)
  Sender: FDA-Public Use
  Company Number: US-BAYER-200942457NA

PATIENT
  Age: 59 Year
  Sex: Female
  Weight: 81.818 kg

DRUGS (32)
  1. MAGNEVIST [Suspect]
  2. PREDNISONE [Concomitant]
  3. FUROSEMIDE [Concomitant]
  4. MAGNEVIST [Suspect]
     Indication: NUCLEAR MAGNETIC RESONANCE IMAGING
     Route: 042
     Dates: start: 20021104, end: 20021104
  5. CLONIDINE [Concomitant]
  6. KLOR-CON [Concomitant]
  7. OMNISCAN [Suspect]
     Indication: NUCLEAR MAGNETIC RESONANCE IMAGING BRAIN
  8. AVAPRO [Concomitant]
  9. AMITRIPTYLINE HCL [Concomitant]
  10. CLONAZEPAM [Concomitant]
  11. FERRIC SODIUM GLUCONATE COMPLEX [Concomitant]
  12. PLAQUENIL [Concomitant]
  13. NEPHROVITE [VIT C,VIT H,B5,B12,B9,B3,B6,B2,B1 HCL] [Concomitant]
  14. LEXAPRO [Concomitant]
  15. FERRLECIT [Concomitant]
  16. MAGNEVIST [Suspect]
     Indication: ANGIOGRAM
     Dates: start: 20030714, end: 20030714
  17. MAGNEVIST [Suspect]
     Indication: NUCLEAR MAGNETIC RESONANCE IMAGING ABDOMINAL
  18. NORVASC [Concomitant]
  19. MINOXIDIL [Concomitant]
  20. COUMADIN [Concomitant]
  21. EPOGEN [Concomitant]
  22. RENAGEL [Concomitant]
  23. MIRATIN [Concomitant]
  24. ZEMPLAR [Concomitant]
  25. NEPHROCAPS [Concomitant]
  26. OMNISCAN [Suspect]
     Indication: NUCLEAR MAGNETIC RESONANCE IMAGING
     Dosage: 18 ML, ONCE
     Dates: start: 20070102, end: 20070102
  27. PARICALCITOL [Concomitant]
  28. AVAPRO [Concomitant]
  29. ELAVIL [Concomitant]
  30. CARDIZEM CD [Concomitant]
  31. PRAVASTATIN [Concomitant]
  32. MORPHINE [Concomitant]

REACTIONS (12)
  - NEPHROGENIC SYSTEMIC FIBROSIS [None]
  - MUSCULOSKELETAL STIFFNESS [None]
  - GAIT DISTURBANCE [None]
  - PAIN [None]
  - MOBILITY DECREASED [None]
  - UPPER EXTREMITY MASS [None]
  - GENERALISED OEDEMA [None]
  - MUSCLE FATIGUE [None]
  - PRURITUS [None]
  - ABASIA [None]
  - PAIN IN EXTREMITY [None]
  - SKIN FIBROSIS [None]
